FAERS Safety Report 5876154-7 (Version None)
Quarter: 2008Q3

REPORT INFORMATION
  Report Type: 
  Country: None (occurrence: None)
  Receive Date: 20080910
  Receipt Date: 20080908
  Transmission Date: 20090109
  Serious: Yes (Other)
  Sender: FDA-Public Use
  Company Number: US-RB-003864-08

PATIENT
  Age: 41 Year
  Sex: Male

DRUGS (3)
  1. SUBOXONE [Suspect]
     Route: 060
     Dates: start: 20080301, end: 20080301
  2. KEPPRA [Concomitant]
     Route: 048
  3. ATIVAN [Concomitant]
     Route: 048

REACTIONS (4)
  - CONVULSION [None]
  - FALL [None]
  - MALAISE [None]
  - VOMITING [None]
